FAERS Safety Report 5358538-9 (Version None)
Quarter: 2007Q2

REPORT INFORMATION
  Report Type: 
  Country: None (occurrence: None)
  Receive Date: 20070613
  Receipt Date: 20070613
  Transmission Date: 20071010
  Serious: No
  Sender: FDA-Public Use
  Company Number: None

PATIENT
  Age: 66 Year
  Sex: Female

DRUGS (1)
  1. CAPZASIN HP CREAM [Suspect]
     Dates: start: 20070120, end: 20070120

REACTIONS (4)
  - APPLICATION SITE IRRITATION [None]
  - BACK PAIN [None]
  - FEELING ABNORMAL [None]
  - PAIN [None]
